FAERS Safety Report 11771866 (Version 1)
Quarter: 2015Q4

REPORT INFORMATION
  Report Type: Spontaneous
  Country: US (occurrence: None)
  Receive Date: 20151123
  Receipt Date: 20151123
  Transmission Date: 20160304
  Serious: No
  Sender: FDA-Public Use
  Company Number: None

PATIENT
  Age: 72 Year
  Sex: Female
  Weight: 71.22 kg

DRUGS (11)
  1. BUPROPRION [Concomitant]
     Active Substance: BUPROPION
  2. HCTZ [Concomitant]
     Active Substance: HYDROCHLOROTHIAZIDE
  3. LIOTHYRONINE [Concomitant]
     Active Substance: LIOTHYRONINE
  4. HORMONE REPLACEMENT (BIOIDENTIACL) CREAM [Concomitant]
  5. MVM [Concomitant]
  6. NEPRINOL AFD [Concomitant]
     Active Substance: LIPASE
  7. VITAMIN C [Concomitant]
     Active Substance: ASCORBIC ACID
  8. VITAMIN D [Concomitant]
     Active Substance: CHOLECALCIFEROL
  9. BENICAR [Suspect]
     Active Substance: OLMESARTAN MEDOXOMIL
     Indication: HYPERTENSION
     Dosage: 1 A DAY
     Route: 048
     Dates: start: 20151111, end: 20151118
  10. FISH OIL [Concomitant]
     Active Substance: FISH OIL
  11. WP THROID [Concomitant]

REACTIONS (2)
  - Gait disturbance [None]
  - Tinnitus [None]

NARRATIVE: CASE EVENT DATE: 20151111
